FAERS Safety Report 5157675-1 (Version None)
Quarter: 2006Q4

REPORT INFORMATION
  Report Type: 
  Country: None (occurrence: None)
  Receive Date: 20061127
  Receipt Date: 20061025
  Transmission Date: 20070319
  Serious: Yes (Life-Threatening)
  Sender: FDA-Public Use
  Company Number: 2006AP05109

PATIENT
  Age: 21 Year
  Sex: Female

DRUGS (3)
  1. MARCAINE HYDROCHLORIDE PRESERVATIVE FREE [Suspect]
     Indication: SPINAL ANAESTHESIA
     Dosage: 2.4 ML IN L2/3 INTERSPACE IN THE RIGHT LATERAL
     Route: 037
     Dates: start: 20060106, end: 20060106
  2. PROPACIL [Concomitant]
     Indication: HYPERTHYROIDISM
     Route: 048
     Dates: start: 20050831
  3. FOLIAMIN [Concomitant]
     Indication: ANAEMIA
     Route: 048
     Dates: start: 20060104, end: 20060107

REACTIONS (2)
  - ATRIOVENTRICULAR BLOCK THIRD DEGREE [None]
  - CARDIAC ARREST [None]
